FAERS Safety Report 6874198-X (Version None)
Quarter: 2010Q3

REPORT INFORMATION
  Report Type: 
  Country: None (occurrence: None)
  Receive Date: 20100723
  Receipt Date: 20090613
  Transmission Date: 20110219
  Serious: No
  Sender: FDA-Public Use
  Company Number: US-PFIZER INC-2009210485

PATIENT
  Sex: Female
  Weight: 64.41 kg

DRUGS (3)
  1. CHANTIX [Suspect]
     Indication: SMOKING CESSATION THERAPY
     Dosage: UNK
     Route: 048
     Dates: start: 20090410, end: 20090429
  2. MORPHINE [Concomitant]
     Indication: NERVE INJURY
  3. DONNATAL [Concomitant]
     Indication: NERVE INJURY

REACTIONS (5)
  - DYSPNOEA [None]
  - EUPHORIC MOOD [None]
  - HEART RATE ABNORMAL [None]
  - NERVOUSNESS [None]
  - PAIN [None]
